FAERS Safety Report 12288391 (Version 1)
Quarter: 2016Q2

REPORT INFORMATION
  Report Type: Spontaneous
  Country: US (occurrence: US)
  Receive Date: 20160420
  Receipt Date: 20160420
  Transmission Date: 20160815
  Serious: No
  Sender: FDA-Public Use
  Company Number: US-ASTELLAS-2016US009518

PATIENT
  Age: 87 Year
  Sex: Male

DRUGS (5)
  1. FLUOROMETHOLONE ACETATE [Suspect]
     Active Substance: FLUOROMETHOLONE ACETATE
     Indication: EYE SWELLING
     Dosage: SMALL AMOUNT, TWICE DAILY
     Route: 047
     Dates: start: 20160204, end: 20160208
  2. TACROLIMUS OINTMENT [Suspect]
     Active Substance: TACROLIMUS
     Dosage: SMALL AMOUNT, TWICE DAILY
     Route: 061
     Dates: start: 20160308, end: 20160308
  3. TACROLIMUS OINTMENT [Suspect]
     Active Substance: TACROLIMUS
     Indication: ECZEMA
     Dosage: SMALL AMOUNT, ONCE DAILY
     Route: 061
     Dates: start: 20160204, end: 20160208
  4. TACROLIMUS OINTMENT [Suspect]
     Active Substance: TACROLIMUS
     Dosage: SMALL AMOUNT, SINGLE, ONCE DAILY
     Route: 061
     Dates: start: 20160307, end: 20160307
  5. MELOXICAM. [Concomitant]
     Active Substance: MELOXICAM
     Indication: PRODUCT USED FOR UNKNOWN INDICATION
     Dosage: UNK UNK, UNKNOWN FREQ.
     Route: 065

REACTIONS (4)
  - Hypersensitivity [Not Recovered/Not Resolved]
  - Erythema of eyelid [Not Recovered/Not Resolved]
  - Accidental exposure to product [Unknown]
  - Eyelid oedema [Not Recovered/Not Resolved]

NARRATIVE: CASE EVENT DATE: 201602
